FAERS Safety Report 17843570 (Version 1)
Quarter: 2020Q2

REPORT INFORMATION
  Report Type: Report from Study
  Country: US (occurrence: US)
  Receive Date: 20200531
  Receipt Date: 20200531
  Transmission Date: 20200714
  Serious: Yes (Hospitalization)
  Sender: FDA-Public Use
  Company Number: US-DECIPHERA PHARMACEUTICALS, LLC-2085308

PATIENT
  Age: 68 Year
  Sex: Female
  Weight: 80.1 kg

DRUGS (35)
  1. LEVOTHYROXINE SODIUM. [Concomitant]
     Active Substance: LEVOTHYROXINE SODIUM
     Dates: start: 20170927
  2. OXYCODONE. [Concomitant]
     Active Substance: OXYCODONE HYDROCHLORIDE
     Dates: start: 20170828
  3. DCC-2618 (DCC-2618) [Suspect]
     Active Substance: RIPRETINIB
     Route: 048
     Dates: start: 20181225, end: 20181231
  4. DCC-2618 (DCC-2618) [Suspect]
     Active Substance: RIPRETINIB
     Route: 048
     Dates: start: 20190101, end: 20190101
  5. DCC-2618 (DCC-2618) [Suspect]
     Active Substance: RIPRETINIB
     Route: 048
     Dates: start: 20190206, end: 20190206
  6. DCC-2618 (DCC-2618) [Suspect]
     Active Substance: RIPRETINIB
     Route: 048
     Dates: start: 20190401
  7. IMODIUM [Concomitant]
     Active Substance: LOPERAMIDE HYDROCHLORIDE
     Dates: start: 20150708
  8. DCC-2618 (DCC-2618) [Suspect]
     Active Substance: RIPRETINIB
     Route: 048
     Dates: start: 20190126, end: 20190126
  9. QINLOCK [Suspect]
     Active Substance: RIPRETINIB
     Indication: GASTROINTESTINAL STROMAL TUMOUR
     Route: 048
     Dates: start: 20170927, end: 20171029
  10. DCC-2618 (DCC-2618) [Suspect]
     Active Substance: RIPRETINIB
     Route: 048
     Dates: start: 20181206, end: 20181210
  11. DCC-2618 (DCC-2618) [Suspect]
     Active Substance: RIPRETINIB
     Route: 048
     Dates: start: 20181219, end: 20181219
  12. DCC-2618 (DCC-2618) [Suspect]
     Active Substance: RIPRETINIB
     Route: 048
     Dates: start: 20181224, end: 20181224
  13. DCC-2618 (DCC-2618) [Suspect]
     Active Substance: RIPRETINIB
     Route: 048
     Dates: start: 20190207, end: 20190214
  14. DCC-2618 (DCC-2618) [Suspect]
     Active Substance: RIPRETINIB
     Route: 048
     Dates: start: 20181211, end: 20181211
  15. DCC-2618 (DCC-2618) [Suspect]
     Active Substance: RIPRETINIB
     Route: 048
     Dates: start: 20181220, end: 20181223
  16. MULTIVITAMIN (MULTIVITAMIN NOS) [Concomitant]
     Dates: start: 20150708
  17. XANAX [Concomitant]
     Active Substance: ALPRAZOLAM
     Dates: start: 20150708
  18. RUGBY ARTIFICIAL TEARS (POLYVINYL ALCOHOL) [Concomitant]
     Active Substance: POLYVINYL ALCOHOL
  19. DCC-2618 (DCC-2618) [Suspect]
     Active Substance: RIPRETINIB
     Route: 048
     Dates: start: 20180528, end: 20180917
  20. DCC-2618 (DCC-2618) [Suspect]
     Active Substance: RIPRETINIB
     Route: 048
     Dates: start: 20180920, end: 20181028
  21. DCC-2618 (DCC-2618) [Suspect]
     Active Substance: RIPRETINIB
     Route: 048
     Dates: start: 20181102, end: 20181120
  22. DCC-2618 (DCC-2618) [Suspect]
     Active Substance: RIPRETINIB
     Route: 048
     Dates: start: 20181129, end: 20181129
  23. DCC-2618 (DCC-2618) [Suspect]
     Active Substance: RIPRETINIB
     Route: 048
     Dates: start: 20181205, end: 20181205
  24. DCC-2618 (DCC-2618) [Suspect]
     Active Substance: RIPRETINIB
     Route: 048
     Dates: start: 20190102, end: 20190125
  25. DCC-2618 (DCC-2618) [Suspect]
     Active Substance: RIPRETINIB
     Route: 048
     Dates: start: 20190215, end: 20190215
  26. VALTREX [Concomitant]
     Active Substance: VALACYCLOVIR HYDROCHLORIDE
     Dates: start: 20130910
  27. COMPAZINE [Concomitant]
     Active Substance: PROCHLORPERAZINE MALEATE
     Dates: start: 20170828, end: 20190320
  28. TOBRADEX [Concomitant]
     Active Substance: DEXAMETHASONE\TOBRAMYCIN
     Dates: start: 20180918
  29. AMOXICILLIN. [Concomitant]
     Active Substance: AMOXICILLIN
     Dates: start: 20190131, end: 20190206
  30. DCC-2618 (DCC-2618) [Suspect]
     Active Substance: RIPRETINIB
     Route: 048
     Dates: start: 20191121, end: 20191128
  31. DCC-2618 (DCC-2618) [Suspect]
     Active Substance: RIPRETINIB
     Route: 048
     Dates: start: 20181130, end: 20181204
  32. SILVADENE [Concomitant]
     Active Substance: SILVER SULFADIAZINE
     Dates: start: 20171025
  33. DCC-2618 (DCC-2618) [Suspect]
     Active Substance: RIPRETINIB
     Route: 048
     Dates: start: 20171031, end: 20180526
  34. DCC-2618 (DCC-2618) [Suspect]
     Active Substance: RIPRETINIB
     Route: 048
     Dates: start: 20181212, end: 20181218
  35. DCC-2618 (DCC-2618) [Suspect]
     Active Substance: RIPRETINIB
     Route: 048
     Dates: start: 20190127, end: 20190205

REACTIONS (1)
  - Aortic dissection [Not Recovered/Not Resolved]

NARRATIVE: CASE EVENT DATE: 20190215
